FAERS Safety Report 14447445 (Version 2)
Quarter: 2019Q1

REPORT INFORMATION
  Report Type: Spontaneous
  Country: US (occurrence: US)
  Receive Date: 20180126
  Receipt Date: 20190204
  Transmission Date: 20190417
  Serious: No
  Sender: FDA-Public Use
  Company Number: US-ABBVIE-17K-163-1903132-00

PATIENT

DRUGS (1)
  1. HUMIRA [Suspect]
     Active Substance: ADALIMUMAB
     Indication: HIDRADENITIS
     Route: 058

REACTIONS (12)
  - Discomfort [Unknown]
  - Inappropriate schedule of product administration [Unknown]
  - Dermatitis [Unknown]
  - Purulent discharge [Not Recovered/Not Resolved]
  - Dry skin [Unknown]
  - Hidradenitis [Not Recovered/Not Resolved]
  - Gastroenteritis viral [Unknown]
  - Cyst [Not Recovered/Not Resolved]
  - Stress [Unknown]
  - Nausea [Unknown]
  - Nasopharyngitis [Unknown]
  - Pain of skin [Unknown]
